FAERS Safety Report 16255543 (Version 2)
Quarter: 2025Q4

REPORT INFORMATION
  Report Type: Spontaneous
  Country: EU (occurrence: EU)
  Receive Date: 20190430
  Receipt Date: 20251208
  Transmission Date: 20260117
  Serious: Yes (Other)
  Sender: AUROBINDO
  Company Number: EU-AUROBINDO-AUR-APL-2019-023277

PATIENT
  Age: 44 Year
  Sex: Female

DRUGS (8)
  1. LISINOPRIL [Suspect]
     Active Substance: LISINOPRIL
     Indication: Product used for unknown indication
     Dosage: UNK
     Route: 065
  2. FUROSEMIDE [Suspect]
     Active Substance: FUROSEMIDE
     Indication: Product used for unknown indication
     Dosage: UNK
     Route: 065
  3. EZETIMIBE [Concomitant]
     Active Substance: EZETIMIBE
     Indication: Product used for unknown indication
     Dosage: UNK
     Route: 065
  4. PREDNISOLONE [Concomitant]
     Active Substance: PREDNISOLONE
     Indication: Product used for unknown indication
     Dosage: 60 MILLIGRAM, DAILY
     Route: 065
  5. METHYLPREDNISOLONE [Concomitant]
     Active Substance: METHYLPREDNISOLONE
     Indication: Product used for unknown indication
     Dosage: 1 GRAM, DAILY
     Route: 065
  6. raltegravir/abacavir/lamivudine [Concomitant]
     Indication: Product used for unknown indication
     Dosage: UNK
     Route: 065
  7. CYCLOPHOSPHAMIDE [Concomitant]
     Active Substance: CYCLOPHOSPHAMIDE
     Indication: Product used for unknown indication
     Dosage: 200 MILLIGRAM, DAILY (2MG/KG/DAY)
     Route: 065
  8. ABACAVIR [Concomitant]
     Active Substance: ABACAVIR
     Indication: Acquired immunodeficiency syndrome
     Dosage: UNK
     Route: 065

REACTIONS (4)
  - Renal impairment [Recovered/Resolved]
  - Genital herpes [Recovered/Resolved]
  - Proteinuria [Recovered/Resolved]
  - Off label use [Unknown]
